FAERS Safety Report 14112798 (Version 1)
Quarter: 2017Q4

REPORT INFORMATION
  Report Type: Spontaneous
  Country: US (occurrence: US)
  Receive Date: 20171021
  Receipt Date: 20171021
  Transmission Date: 20180321
  Serious: No
  Sender: FDA-Public Use
  Company Number: PHEH2017US033785

PATIENT
  Age: 68 Year
  Sex: Female

DRUGS (1)
  1. TAFINLAR [Suspect]
     Active Substance: DABRAFENIB MESYLATE
     Indication: MALIGNANT MELANOMA
     Dosage: 2 DF, Q12H
     Route: 048
     Dates: start: 20170701

REACTIONS (3)
  - Irritability [Unknown]
  - Abnormal behaviour [Unknown]
  - Agitation [Unknown]

NARRATIVE: CASE EVENT DATE: 20170929
